FAERS Safety Report 4514287-8 (Version None)
Quarter: 2004Q4

REPORT INFORMATION
  Report Type: 
  Country: None (occurrence: None)
  Receive Date: 20041124
  Receipt Date: 20041105
  Transmission Date: 20050328
  Serious: Yes (Hospitalization)
  Sender: FDA-Public Use
  Company Number: AU_041108169

PATIENT
  Age: 38 Year
  Sex: Male

DRUGS (1)
  1. CIALIS [Suspect]
     Indication: ERECTILE DYSFUNCTION
     Dates: start: 20040903, end: 20040904

REACTIONS (2)
  - ARTERY DISSECTION [None]
  - CEREBROVASCULAR ACCIDENT [None]
